FAERS Safety Report 23246906 (Version 3)
Quarter: 2024Q1

REPORT INFORMATION
  Report Type: Other
  Country: US (occurrence: None)
  Receive Date: 20231130
  Receipt Date: 20240208
  Transmission Date: 20240410
  Serious: Yes (Hospitalization)
  Sender: FDA-Public Use
  Company Number: US-ROCHE-3460662

PATIENT
  Age: 67 Year
  Sex: Female

DRUGS (1)
  1. ESBRIET [Suspect]
     Active Substance: PIRFENIDONE
     Indication: Interstitial lung disease
     Dosage: TAKE 3 TABLETS BY MOUTH 3 TIMES A DAY
     Route: 048

REACTIONS (3)
  - Fall [Unknown]
  - Hip fracture [Unknown]
  - Diarrhoea [Unknown]
